FAERS Safety Report 6947511-2 (Version None)
Quarter: 2010Q3

REPORT INFORMATION
  Report Type: 
  Country: None (occurrence: None)
  Receive Date: 20100825
  Receipt Date: 20100803
  Transmission Date: 20110219
  Serious: Yes (Other)
  Sender: FDA-Public Use
  Company Number: 016740

PATIENT
  Sex: Female
  Weight: 45.4 kg

DRUGS (9)
  1. CIMZIA [Suspect]
     Indication: RHEUMATOID ARTHRITIS
     Dosage: 400 MG 1X/MONTH SUBCUTANEOUS
     Route: 058
     Dates: start: 20100601
  2. METHOTREXATE [Concomitant]
  3. PREDNISONE [Concomitant]
  4. BONIVA [Concomitant]
  5. XANAX [Concomitant]
  6. OMEPRAZOLE [Concomitant]
  7. LEXAPRO [Concomitant]
  8. FOLIC ACID [Concomitant]
  9. TETRACYCLINE [Concomitant]

REACTIONS (4)
  - ANTIBIOTIC RESISTANT STAPHYLOCOCCUS TEST POSITIVE [None]
  - ERYTHEMA [None]
  - MASS [None]
  - PRURITUS [None]
